FAERS Safety Report 20672667 (Version 1)
Quarter: 2022Q2

REPORT INFORMATION
  Report Type: Spontaneous
  Country: US (occurrence: US)
  Receive Date: 20220405
  Receipt Date: 20220405
  Transmission Date: 20220720
  Serious: Yes (Other)
  Sender: FDA-Public Use
  Company Number: US-EDENBRIDGE PHARMACEUTICALS, LLC-US-2022EDE000022

PATIENT
  Age: 25 Year
  Sex: Female

DRUGS (1)
  1. LOPERAMIDE [Suspect]
     Active Substance: LOPERAMIDE
     Indication: Product used for unknown indication
     Dosage: UNK (MORE THEN 100 PILLS), QD

REACTIONS (14)
  - Cardiomyopathy [Unknown]
  - Cardiogenic shock [Unknown]
  - Atrioventricular block first degree [Unknown]
  - Syncope [Unknown]
  - Ventricular tachycardia [Unknown]
  - Cardiac arrest [Unknown]
  - Cardiac failure congestive [Recovered/Resolved]
  - Hypotension [Unknown]
  - Torsade de pointes [Unknown]
  - Cardiotoxicity [Unknown]
  - Bradycardia [Unknown]
  - Ventricular arrhythmia [Recovered/Resolved]
  - Brugada syndrome [Unknown]
  - Drug abuse [Unknown]
